FAERS Safety Report 7313154-4 (Version None)
Quarter: 2011Q1

REPORT INFORMATION
  Report Type: 
  Country: None (occurrence: None)
  Receive Date: 20110215
  Receipt Date: 20110215
  Transmission Date: 20110831
  Serious: Yes (Other)
  Sender: FDA-Public Use
  Company Number: None

PATIENT
  Sex: Female

DRUGS (1)
  1. TIZANIDINE HCL [Suspect]
     Indication: SCOLIOSIS
     Dates: start: 20040101

REACTIONS (2)
  - LOSS OF CONSCIOUSNESS [None]
  - AMNESIA [None]
